FAERS Safety Report 4541646-X (Version None)
Quarter: 2004Q4

REPORT INFORMATION
  Report Type: 
  Country: None (occurrence: None)
  Receive Date: 20041227
  Receipt Date: 20041210
  Transmission Date: 20050328
  Serious: Yes (Hospitalization)
  Sender: FDA-Public Use
  Company Number: TNZUK200400137

PATIENT
  Age: 62 Year
  Sex: Female

DRUGS (1)
  1. INNOHEP [Suspect]
     Indication: THROMBOSIS PROPHYLAXIS
     Dosage: 3400 IU (DAILY), SUBCUTANEOUS
     Route: 058

REACTIONS (3)
  - DIABETIC AMYOTROPHY [None]
  - THYROXINE FREE INCREASED [None]
  - TRI-IODOTHYRONINE FREE INCREASED [None]
